FAERS Safety Report 7478249-3 (Version None)
Quarter: 2011Q2

REPORT INFORMATION
  Report Type: 
  Country: None (occurrence: None)
  Receive Date: 20110513
  Receipt Date: 20110511
  Transmission Date: 20111010
  Serious: Yes (Death)
  Sender: FDA-Public Use
  Company Number: PHHO2011AU08098

PATIENT
  Sex: Male
  Weight: 97.7 kg

DRUGS (7)
  1. IMATINIB MESYLATE [Suspect]
     Indication: CHRONIC MYELOID LEUKAEMIA
     Dosage: 600 MG DAILY
     Route: 048
     Dates: start: 20101217
  2. ZOTON [Concomitant]
  3. ZYPREXA [Concomitant]
     Dosage: UNK
  4. NATRILIX [Concomitant]
  5. ALPRAZOLAM [Concomitant]
  6. CRESTOR [Concomitant]
  7. RAMIPRIL [Concomitant]

REACTIONS (1)
  - SUDDEN DEATH [None]
